FAERS Safety Report 14627422 (Version 1)
Quarter: 2018Q1

REPORT INFORMATION
  Report Type: Spontaneous
  Country: US (occurrence: US)
  Receive Date: 20180312
  Receipt Date: 20180312
  Transmission Date: 20180509
  Serious: Yes (Death, Disabling, Other)
  Sender: FDA-Public Use
  Company Number: US-REGENERON PHARMACEUTICALS, INC.-2018-16848

PATIENT

DRUGS (4)
  1. EYLEA [Suspect]
     Active Substance: AFLIBERCEPT
     Indication: MACULAR DEGENERATION
     Dosage: UNK, RIGHT EYE
     Dates: start: 2015
  2. EYLEA [Suspect]
     Active Substance: AFLIBERCEPT
     Dosage: UNK, LEFT EYE
     Dates: start: 201712, end: 201712
  3. EYLEA [Suspect]
     Active Substance: AFLIBERCEPT
     Dosage: UNK, RIHT EYE, LAST DOSE
     Dates: start: 2017, end: 2017
  4. EYLEA [Suspect]
     Active Substance: AFLIBERCEPT
     Dosage: UNK, LEFT EYE
     Dates: start: 201709, end: 201709

REACTIONS (4)
  - Influenza [Unknown]
  - Pneumonia viral [Fatal]
  - Eye disorder [Unknown]
  - Living in residential institution [Not Recovered/Not Resolved]

NARRATIVE: CASE EVENT DATE: 2017
